FAERS Safety Report 6152182-1 (Version None)
Quarter: 2009Q2

REPORT INFORMATION
  Report Type: 
  Country: None (occurrence: None)
  Receive Date: 20090410
  Receipt Date: 20090106
  Transmission Date: 20091009
  Serious: No
  Sender: FDA-Public Use
  Company Number: US-ASTRAZENECA-2003UW08905

PATIENT
  Sex: Female
  Weight: 106.6 kg

DRUGS (7)
  1. TENORMIN [Suspect]
     Indication: HYPERTENSION
     Route: 048
  2. TENORMIN [Suspect]
     Route: 048
  3. POTASSIUM CHLORIDE [Concomitant]
  4. AVAPRO [Concomitant]
  5. HYDROCHLOROTHIAZIDE [Concomitant]
  6. COZAAR [Concomitant]
  7. LENOSAL [Concomitant]
     Indication: BLOOD PRESSURE

REACTIONS (7)
  - BACK PAIN [None]
  - BLOOD PRESSURE FLUCTUATION [None]
  - DIARRHOEA [None]
  - DIZZINESS [None]
  - EYE SWELLING [None]
  - POLLAKIURIA [None]
  - RENAL DISORDER [None]
